FAERS Safety Report 6671395-3 (Version None)
Quarter: 2010Q2

REPORT INFORMATION
  Report Type: 
  Country: None (occurrence: None)
  Receive Date: 20100407
  Receipt Date: 20100330
  Transmission Date: 20101027
  Serious: Yes (Other)
  Sender: FDA-Public Use
  Company Number: B0645023A

PATIENT
  Sex: Male

DRUGS (6)
  1. REQUIP [Suspect]
     Indication: PARKINSON'S DISEASE
     Dosage: .75MG PER DAY
     Route: 048
     Dates: start: 20100125, end: 20100228
  2. REQUIP [Suspect]
     Dosage: 6MG PER DAY
     Route: 048
     Dates: start: 20100301, end: 20100328
  3. REQUIP [Suspect]
     Dosage: 1.5MG PER DAY
     Route: 048
     Dates: start: 20100329
  4. EC DOPARL [Concomitant]
     Indication: PARKINSON'S DISEASE
     Dosage: 3TAB PER DAY
     Route: 048
     Dates: start: 20080925
  5. FAMOTIDINE [Concomitant]
     Indication: GASTRITIS
     Dosage: 20MG PER DAY
     Route: 048
     Dates: start: 20031030
  6. GLYSENNID [Concomitant]
     Indication: CONSTIPATION
     Dosage: 12MG PER DAY
     Route: 048
     Dates: start: 20090528

REACTIONS (3)
  - DELIRIUM [None]
  - DRUG PRESCRIBING ERROR [None]
  - OVERDOSE [None]
